FAERS Safety Report 8929073 (Version 1)
Quarter: 2012Q4

REPORT INFORMATION
  Report Type: 
  Country: US (occurrence: US)
  Receive Date: 20121128
  Receipt Date: 20121128
  Transmission Date: 20130627
  Serious: No
  Sender: FDA-Public Use
  Company Number: US-BIOGENIDEC-2012BI053587

PATIENT
  Age: 53 Year
  Sex: Female

DRUGS (6)
  1. AVONEX [Suspect]
     Indication: MULTIPLE SCLEROSIS
     Route: 030
     Dates: start: 20120620
  2. AVONEX [Suspect]
     Indication: MULTIPLE SCLEROSIS
     Route: 030
     Dates: start: 201207
  3. NEURONTIN [Concomitant]
     Indication: MUSCLE SPASMS
     Dates: end: 2012
  4. NEURONTIN [Concomitant]
     Indication: TREMOR
     Dates: end: 2012
  5. VALIUM [Concomitant]
     Indication: ANXIETY
  6. VICODIN [Concomitant]
     Indication: PAIN IN EXTREMITY

REACTIONS (5)
  - Visual impairment [Recovered/Resolved]
  - Weight increased [Not Recovered/Not Resolved]
  - Abdominal pain upper [Recovered/Resolved]
  - Headache [Recovered/Resolved]
  - Suicidal ideation [Recovered/Resolved]
